FAERS Safety Report 15311873 (Version 1)
Quarter: 2018Q3

REPORT INFORMATION
  Report Type: Spontaneous
  Country: GB (occurrence: GB)
  Receive Date: 20180823
  Receipt Date: 20180823
  Transmission Date: 20181010
  Serious: Yes (Death, Life-Threatening, Hospitalization, Other)
  Sender: FDA-Public Use
  Company Number: GB-FRESENIUS KABI-FK201808784

PATIENT
  Age: 75 Year
  Sex: Male

DRUGS (4)
  1. METHYLPREDNISOLONE (MANUFACTURER UNKNOWN) [Suspect]
     Active Substance: METHYLPREDNISOLONE
     Indication: TEMPORAL ARTERITIS
     Dosage: UNKNOWN
     Route: 065
  2. PREDNISOLONE. [Suspect]
     Active Substance: PREDNISOLONE
     Route: 065
  3. PREDNISOLONE. [Suspect]
     Active Substance: PREDNISOLONE
     Indication: TEMPORAL ARTERITIS
     Route: 048
  4. METFORMIN [Concomitant]
     Active Substance: METFORMIN HYDROCHLORIDE
     Indication: TYPE 2 DIABETES MELLITUS
     Dosage: UNKNOWN
     Route: 065

REACTIONS (12)
  - Herpes simplex [Unknown]
  - Skin necrosis [Unknown]
  - Mucormycosis [Fatal]
  - Staphylococcal infection [Unknown]
  - Hydrocephalus [Unknown]
  - Cerebellar infarction [Unknown]
  - Klebsiella infection [Unknown]
  - Cavernous sinus thrombosis [Unknown]
  - Vasculitis cerebral [Unknown]
  - Candida infection [Unknown]
  - Infection [Unknown]
  - Subarachnoid haemorrhage [Unknown]
